FAERS Safety Report 6406401-4 (Version None)
Quarter: 2009Q4

REPORT INFORMATION
  Report Type: 
  Country: None (occurrence: None)
  Receive Date: 20091014
  Receipt Date: 20090930
  Transmission Date: 20100525
  Serious: Yes (Hospitalization)
  Sender: FDA-Public Use
  Company Number: PAR_03204_2009

PATIENT
  Age: 53 Year
  Sex: Female
  Weight: 77.1115 kg

DRUGS (4)
  1. HYDRALAZINE HCL [Suspect]
     Indication: HYPERTENSION
     Dosage: (25 MG 1X/8 HOURS ORAL) ; (75 MG 1X/8 HOURS ORAL)
     Route: 048
     Dates: start: 20080101, end: 20090925
  2. HYDRALAZINE HCL [Suspect]
     Indication: HYPERTENSION
     Dosage: (25 MG 1X/8 HOURS ORAL) ; (75 MG 1X/8 HOURS ORAL)
     Route: 048
     Dates: start: 20080101, end: 20090925
  3. LABETALOL HCL [Suspect]
     Indication: HYPERTENSION
     Dosage: (600 MG ORAL)
     Route: 048
     Dates: start: 20080101
  4. JANUVIA [Concomitant]

REACTIONS (2)
  - BLOOD PRESSURE INCREASED [None]
  - PRODUCT QUALITY ISSUE [None]
